FAERS Safety Report 10210201 (Version 1)
Quarter: 2014Q2

REPORT INFORMATION
  Report Type: Spontaneous
  Country: US (occurrence: US)
  Receive Date: 20140602
  Receipt Date: 20140602
  Transmission Date: 20141212
  Serious: No
  Sender: FDA-Public Use
  Company Number: US-009507513-1405USA015495

PATIENT
  Sex: Female

DRUGS (1)
  1. DR. SCHOLL?S ODOR-X SPRAY POWDER [Suspect]
     Indication: HYPERHIDROSIS
     Dosage: UNKNOWN
     Route: 061

REACTIONS (2)
  - Nausea [Unknown]
  - Product odour abnormal [Unknown]
